FAERS Safety Report 6700437-1 (Version None)
Quarter: 2010Q2

REPORT INFORMATION
  Report Type: 
  Country: None (occurrence: None)
  Receive Date: 20100428
  Receipt Date: 20100416
  Transmission Date: 20101027
  Serious: Yes (Other)
  Sender: FDA-Public Use
  Company Number: US-ROCHE-699005

PATIENT
  Age: 64 Year
  Sex: Female

DRUGS (3)
  1. AVASTIN [Suspect]
     Dosage: DOSAGE: NOT PROVIDED,RECIVED 2 CYCLES
     Route: 065
  2. ALIMTA [Concomitant]
  3. CISPLATIN [Concomitant]

REACTIONS (1)
  - BLINDNESS [None]
